FAERS Safety Report 8520826 (Version 4)
Quarter: 2013Q2

REPORT INFORMATION
  Report Type: Spontaneous
  Country: US (occurrence: US)
  Receive Date: 20120419
  Receipt Date: 20130619
  Transmission Date: 20140414
  Serious: No
  Sender: FDA-Public Use
  Company Number: US-ASTRAZENECA-2011SE41537

PATIENT
  Age: 55 Year
  Sex: Female

DRUGS (28)
  1. NEXIUM [Suspect]
     Indication: GASTROOESOPHAGEAL REFLUX DISEASE
     Dosage: ONCE PER DAY
     Route: 048
     Dates: start: 2001, end: 2011
  2. NEXIUM [Suspect]
     Indication: GASTROOESOPHAGEAL REFLUX DISEASE
     Dosage: ONCE PER DAY
     Route: 048
     Dates: start: 2004, end: 2009
  3. NEXIUM [Suspect]
     Indication: GASTROOESOPHAGEAL REFLUX DISEASE
     Route: 048
     Dates: start: 20100330
  4. PREVACID [Concomitant]
     Dates: start: 2001
  5. PRILOSEC [Concomitant]
  6. ZANTAC [Concomitant]
  7. LEVROXYL [Concomitant]
  8. SINGULAIR [Concomitant]
  9. SINGULAIR [Concomitant]
     Route: 048
     Dates: start: 20100330
  10. ALENDRONATE [Concomitant]
     Indication: OSTEOPOROSIS
  11. GABAPENTIN [Concomitant]
     Indication: ANALGESIC THERAPY
  12. PREMARIN [Concomitant]
     Dates: start: 20100330
  13. PREMARIN [Concomitant]
     Route: 048
  14. CYMBALTA [Concomitant]
     Dates: start: 20100330
  15. PREDNISON [Concomitant]
     Dates: start: 20100330
  16. NARCO [Concomitant]
     Indication: PAIN
     Dosage: 10MG-325 MG TAKE 1/2-1 EVERY SIX HOURS AS NEEDED
     Dates: start: 20100330
  17. TESSALON PERLE [Concomitant]
     Indication: COUGH
     Dosage: 100 MG TAKE ONE TO TWO PILLS EVERY 8 HRS AS NEEDED
     Dates: start: 20100330
  18. CLARITIN [Concomitant]
     Indication: MULTIPLE ALLERGIES
     Dates: start: 20100330
  19. FISH OIL [Concomitant]
     Dates: start: 20100330
  20. PRAVASTATIN SODIUM [Concomitant]
     Dates: start: 20100330
  21. REGLAN [Concomitant]
     Dates: start: 20100330
  22. REGLAN [Concomitant]
     Route: 048
  23. ALBUTEROL [Concomitant]
  24. PRAVASTATIN [Concomitant]
  25. ASPIRIN [Concomitant]
  26. CALCIUM [Concomitant]
  27. ZITHROMAX [Concomitant]
  28. HYDROCHLOROTHIAZIDE [Concomitant]
     Indication: SWELLING
     Dosage: 25 MG, TAKE ONE PILL PER DAY AS NEEDED

REACTIONS (16)
  - Osteoporosis [Unknown]
  - Bone density decreased [Unknown]
  - Anxiety [Unknown]
  - Arthritis [Unknown]
  - Bone disorder [Unknown]
  - Carpal tunnel syndrome [Unknown]
  - Fibromyalgia [Unknown]
  - Fall [Unknown]
  - Emotional distress [Unknown]
  - Multiple fractures [Unknown]
  - Bone pain [Unknown]
  - Aphonia [Unknown]
  - Oropharyngeal pain [Unknown]
  - Arthralgia [Unknown]
  - Myalgia [Unknown]
  - Depression [Unknown]
